FAERS Safety Report 15796716 (Version 1)
Quarter: 2019Q1

REPORT INFORMATION
  Report Type: Report from Study
  Country: None (occurrence: US)
  Receive Date: 20190108
  Receipt Date: 20190108
  Transmission Date: 20190417
  Serious: Yes (Hospitalization)
  Sender: FDA-Public Use
  Company Number: US-ABBVIE-19S-163-2614496-00

PATIENT
  Age: 49 Year
  Sex: Male
  Weight: 63.56 kg

DRUGS (4)
  1. CARBIDOPA-LEVODOPA-ENTACAPONE [Concomitant]
     Active Substance: CARBIDOPA\ENTACAPONE\LEVODOPA
     Indication: PRODUCT USED FOR UNKNOWN INDICATION
     Route: 048
     Dates: start: 20151012
  2. SERTALINE [Concomitant]
     Active Substance: SERTRALINE HYDROCHLORIDE
     Indication: PRODUCT USED FOR UNKNOWN INDICATION
  3. DUOPA [Suspect]
     Active Substance: CARBIDOPA\LEVODOPA
     Indication: PRODUCT USED FOR UNKNOWN INDICATION
     Dosage: DOSE DECREASED
     Route: 050
     Dates: start: 20151019, end: 20181204
  4. DUOPA [Suspect]
     Active Substance: CARBIDOPA\LEVODOPA
     Route: 050
     Dates: start: 20181204

REACTIONS (6)
  - Deep brain stimulation [Recovered/Resolved]
  - Granuloma [Not Recovered/Not Resolved]
  - Deep brain stimulation [Recovered/Resolved]
  - Pain [Not Recovered/Not Resolved]
  - Dyskinesia [Not Recovered/Not Resolved]
  - Deep brain stimulation [Recovered/Resolved]

NARRATIVE: CASE EVENT DATE: 201806
